FAERS Safety Report 19267738 (Version 2)
Quarter: 2021Q2

REPORT INFORMATION
  Report Type: Spontaneous
  Country: CN (occurrence: CN)
  Receive Date: 20210517
  Receipt Date: 20210630
  Transmission Date: 20210717
  Serious: Yes (Other)
  Sender: FDA-Public Use
  Company Number: CN-BAYER-2021-141382

PATIENT
  Age: 50 Year
  Sex: Male

DRUGS (1)
  1. CLARITYNE 10 MG [Suspect]
     Active Substance: LORATADINE
     Indication: DERMATITIS ALLERGIC
     Dosage: 1 DF, ONCE
     Route: 048
     Dates: start: 20210513, end: 20210513

REACTIONS (3)
  - Loss of consciousness [Recovered/Resolved]
  - Head injury [Recovered/Resolved]
  - Dizziness [Recovered/Resolved]

NARRATIVE: CASE EVENT DATE: 20210514
